FAERS Safety Report 5110005-3 (Version None)
Quarter: 2006Q3

REPORT INFORMATION
  Report Type: 
  Country: None (occurrence: None)
  Receive Date: 20060921
  Receipt Date: 20060907
  Transmission Date: 20061208
  Serious: Yes (Life-Threatening, Hospitalization)
  Sender: FDA-Public Use
  Company Number: HQWYE467808SEP06

PATIENT
  Sex: Female
  Weight: 40 kg

DRUGS (26)
  1. ENBREL [Suspect]
     Indication: RHEUMATOID ARTHRITIS
     Route: 058
     Dates: start: 20051111, end: 20060512
  2. ENBREL [Suspect]
     Route: 058
     Dates: start: 20051118, end: 20051122
  3. ENBREL [Suspect]
     Route: 058
     Dates: start: 20051129, end: 20060123
  4. ENBREL [Suspect]
     Route: 058
     Dates: start: 20060126, end: 20060512
  5. METHOTREXATE [Suspect]
     Dosage: UNKNOWN
     Route: 048
     Dates: start: 20051102, end: 20051214
  6. METHOTREXATE [Suspect]
     Dosage: UNKNOWN
     Route: 048
     Dates: start: 20051216
  7. PREDONINE [Suspect]
  8. BACTRIM [Concomitant]
  9. ONE-ALPHA [Concomitant]
  10. GASTER [Concomitant]
  11. MAGNESIUM OXIDE [Concomitant]
  12. POSTERISAN [Concomitant]
  13. CATLEP [Concomitant]
  14. FOLIAMIN [Concomitant]
  15. LAXOBERON [Concomitant]
  16. PURSENNID [Concomitant]
  17. ACTONEL [Concomitant]
  18. EURAX [Concomitant]
  19. FUNGIZONE [Concomitant]
  20. ADOFEED [Concomitant]
  21. PREDNISOLONE [Concomitant]
  22. MEVALOTIN [Concomitant]
  23. INSULIN HUMAN [Concomitant]
  24. ISOPHANE INSULIN [Concomitant]
  25. NOVORAPID [Concomitant]
  26. GENTACIN [Concomitant]

REACTIONS (4)
  - CONTUSION [None]
  - CYTOMEGALOVIRUS INFECTION [None]
  - HEAD INJURY [None]
  - PNEUMOCYSTIS JIROVECI PNEUMONIA [None]
